FAERS Safety Report 26138892 (Version 2)
Quarter: 2025Q4

REPORT INFORMATION
  Report Type: Spontaneous
  Country: JP (occurrence: JP)
  Receive Date: 20251210
  Receipt Date: 20251217
  Transmission Date: 20260118
  Serious: Yes (Death, Other)
  Sender: INSMED
  Company Number: JP-INSMED, INC.-2025-07618-JP

PATIENT
  Age: 81 Year
  Sex: Male

DRUGS (1)
  1. ARIKAYCE [Suspect]
     Active Substance: AMIKACIN
     Indication: Mycobacterium avium complex infection
     Dosage: UNK, UNK
     Route: 055
     Dates: start: 20240701, end: 20251020

REACTIONS (3)
  - Mycobacterium avium complex infection [Fatal]
  - Aspergillus infection [Unknown]
  - Drug ineffective [Unknown]
